FAERS Safety Report 14955910 (Version 2)
Quarter: 2018Q2

REPORT INFORMATION
  Report Type: Report from Study
  Country: US (occurrence: US)
  Receive Date: 20180531
  Receipt Date: 20180628
  Transmission Date: 20180711
  Serious: Yes (Hospitalization)
  Sender: FDA-Public Use
  Company Number: US-ROCHE-2129930

PATIENT
  Age: 53 Year
  Sex: Female
  Weight: 124.2 kg

DRUGS (17)
  1. SILVER SULFADIAZIN [Concomitant]
     Active Substance: SILVER SULFADIAZINE
     Route: 061
  2. CEFADROXIL. [Concomitant]
     Active Substance: CEFADROXIL
     Dosage: FOR 10 DAYS
     Route: 048
  3. FLUOCINONIDE. [Concomitant]
     Active Substance: FLUOCINONIDE
     Route: 061
  4. LEVOTHYROXINE. [Concomitant]
     Active Substance: LEVOTHYROXINE
     Route: 065
  5. PENLAC [Concomitant]
     Active Substance: CICLOPIROX
     Dosage: FOR 90 DAYS
     Route: 061
  6. SOLU-CORTEF [Concomitant]
     Active Substance: HYDROCORTISONE SODIUM SUCCINATE
     Route: 065
  7. FERROUS SULFATE. [Concomitant]
     Active Substance: FERROUS SULFATE
     Route: 065
  8. TRIAMCINOLONE [Concomitant]
     Active Substance: TRIAMCINOLONE
     Route: 061
  9. HYDROCORTISONE. [Concomitant]
     Active Substance: HYDROCORTISONE
     Dosage: TAKE 2 TABLETS (10 MG) ONE IN AM AND ONE IN PM, MAY TAKE AN ADDITIONAL 5-10 MG AS REQUIRED
     Route: 065
  10. PANTOPRAZOLE [Concomitant]
     Active Substance: PANTOPRAZOLE
     Route: 065
  11. COBIMETINIB. [Suspect]
     Active Substance: COBIMETINIB
     Indication: ERDHEIM-CHESTER DISEASE
     Dosage: LAST DOSE OF COBIMETINIB ON 17/MAY/2018
     Route: 048
     Dates: start: 20161209
  12. THIAMINE. [Concomitant]
     Active Substance: THIAMINE
     Route: 065
  13. IMODIUM [Concomitant]
     Active Substance: LOPERAMIDE HYDROCHLORIDE
     Route: 065
  14. ACETAMINOPHEN. [Concomitant]
     Active Substance: ACETAMINOPHEN
     Route: 065
  15. LEVETIRACETAM. [Concomitant]
     Active Substance: LEVETIRACETAM
     Route: 065
  16. DDAVP [Concomitant]
     Active Substance: DESMOPRESSIN ACETATE
     Route: 045
  17. PREGABALIN. [Concomitant]
     Active Substance: PREGABALIN
     Route: 065

REACTIONS (9)
  - Metabolic acidosis [Unknown]
  - Asthenia [Unknown]
  - Azotaemia [Unknown]
  - Drug reaction with eosinophilia and systemic symptoms [Unknown]
  - Dehydration [Unknown]
  - Nephropathy toxic [Unknown]
  - Confusional state [Unknown]
  - Somnolence [Unknown]
  - Acute kidney injury [Unknown]

NARRATIVE: CASE EVENT DATE: 20180523
